FAERS Safety Report 25812490 (Version 1)
Quarter: 2025Q3

REPORT INFORMATION
  Report Type: Report from Study
  Country: CA (occurrence: CA)
  Receive Date: 20250917
  Receipt Date: 20250917
  Transmission Date: 20251021
  Serious: Yes (Other)
  Sender: SAMSUNG BIOEPIS
  Company Number: CA-SAMSUNG BIOEPIS-SB-2025-08486

PATIENT
  Age: 69 Year
  Sex: Male

DRUGS (1)
  1. RENFLEXIS [Suspect]
     Active Substance: INFLIXIMAB-ABDA
     Indication: Crohn^s disease
     Route: 042
     Dates: start: 20220308, end: 20250910

REACTIONS (13)
  - Systemic lupus erythematosus [Not Recovered/Not Resolved]
  - Hypersensitivity [Unknown]
  - Pyrexia [Recovered/Resolved]
  - Fatigue [Unknown]
  - Ear infection [Recovered/Resolved]
  - Ear swelling [Unknown]
  - Nasal pruritus [Unknown]
  - Swelling of nose [Unknown]
  - Swelling [Unknown]
  - Sinusitis [Recovered/Resolved]
  - Swelling face [Unknown]
  - Erythema [Unknown]
  - Bacterial infection [Recovered/Resolved]

NARRATIVE: CASE EVENT DATE: 20250213
